FAERS Safety Report 24014225 (Version 1)
Quarter: 2024Q2

REPORT INFORMATION
  Report Type: Report from Study
  Country: PK (occurrence: PK)
  Receive Date: 20240626
  Receipt Date: 20240626
  Transmission Date: 20240716
  Serious: Yes (Death)
  Sender: FDA-Public Use
  Company Number: PK-ROCHE-10000008030

PATIENT
  Age: 58 Year
  Sex: Female

DRUGS (1)
  1. HERCEPTIN [Suspect]
     Active Substance: TRASTUZUMAB
     Indication: Breast cancer
     Route: 058
     Dates: start: 20240214, end: 20240306

REACTIONS (1)
  - Death [Fatal]

NARRATIVE: CASE EVENT DATE: 20240312
